FAERS Safety Report 11048547 (Version 2)
Quarter: 2015Q2

REPORT INFORMATION
  Report Type: Spontaneous
  Country: DE (occurrence: DE)
  Receive Date: 20150420
  Receipt Date: 20150420
  Transmission Date: 20150821
  Serious: Yes (Hospitalization)
  Sender: FDA-Public Use
  Company Number: PHHY2015DE045297

PATIENT
  Age: 52 Year
  Sex: Female

DRUGS (4)
  1. DICLOFENAC [Suspect]
     Active Substance: DICLOFENAC
     Route: 065
     Dates: start: 20080307, end: 20080311
  2. DICLOFENAC [Suspect]
     Active Substance: DICLOFENAC
     Indication: CERVICOBRACHIAL SYNDROME
     Route: 065
     Dates: start: 200712, end: 200801
  3. HERBAL NOS [Concomitant]
     Active Substance: HERBALS
     Indication: PRODUCT USED FOR UNKNOWN INDICATION
     Route: 065
  4. DOLO-ARTHROSENEX [Concomitant]
     Indication: PRODUCT USED FOR UNKNOWN INDICATION
     Route: 065

REACTIONS (4)
  - Hepatitis [Unknown]
  - Infection [Unknown]
  - Hepatobiliary disease [Unknown]
  - Drug-induced liver injury [Unknown]
